FAERS Safety Report 7316527-9 (Version None)
Quarter: 2011Q1

REPORT INFORMATION
  Report Type: 
  Country: None (occurrence: None)
  Receive Date: 20110226
  Receipt Date: 20100706
  Transmission Date: 20110831
  Serious: No
  Sender: FDA-Public Use
  Company Number: US-ALLERGAN-1008731US

PATIENT
  Sex: Male

DRUGS (3)
  1. BOTOX COSMETIC [Suspect]
     Dosage: 12 UNITS, UNK
     Dates: start: 20100413, end: 20100413
  2. BOTOX COSMETIC [Suspect]
     Dosage: 60 UNITS, SINGLE
     Route: 030
     Dates: start: 20100408, end: 20100408
  3. BOTOX COSMETIC [Suspect]
     Indication: SKIN WRINKLING
     Dosage: UNK
     Route: 030
     Dates: start: 20100304, end: 20100304

REACTIONS (2)
  - THERAPEUTIC RESPONSE DECREASED [None]
  - EYELID PTOSIS [None]
